FAERS Safety Report 6677940-6 (Version None)
Quarter: 2010Q2

REPORT INFORMATION
  Report Type: 
  Country: None (occurrence: None)
  Receive Date: 20100412
  Receipt Date: 20100330
  Transmission Date: 20101027
  Serious: Yes (Hospitalization)
  Sender: FDA-Public Use
  Company Number: US-ELI_LILLY_AND_COMPANY-US201003007594

PATIENT
  Sex: Female

DRUGS (6)
  1. FORTEO [Suspect]
     Indication: OSTEOPOROSIS
     Dosage: 20 UG, DAILY (1/D)
  2. FORTEO [Suspect]
     Dosage: 20 UG, DAILY (1/D)
     Dates: start: 20100315
  3. BENAZEPRIL HYDROCHLORIDE [Concomitant]
  4. SYNTHROID [Concomitant]
  5. CALCIUM W/VITAMIN D NOS [Concomitant]
  6. ASPIRIN [Concomitant]
     Dosage: 81 MG, UNK

REACTIONS (2)
  - ARTHRALGIA [None]
  - ARTHRITIS [None]
